FAERS Safety Report 9179800 (Version 1)
Quarter: 2013Q1

REPORT INFORMATION
  Report Type: Spontaneous
  Country: US (occurrence: US)
  Receive Date: 20130321
  Receipt Date: 20130321
  Transmission Date: 20140127
  Serious: Yes (Hospitalization)
  Sender: FDA-Public Use
  Company Number: US-PFIZER INC-2011061428

PATIENT
  Age: 68 Year
  Sex: Male
  Weight: 90.7 kg

DRUGS (15)
  1. LYRICA [Suspect]
     Indication: ARTHRALGIA
     Dosage: 150 MG, 2X/DAY
     Route: 048
  2. LYRICA [Suspect]
     Indication: PAIN IN EXTREMITY
  3. NIACIN [Concomitant]
     Indication: SUPPLEMENTATION THERAPY
     Dosage: UNK
  4. AMLODIPINE [Concomitant]
     Indication: HYPERTENSION
     Dosage: 5 MG, 1X/DAY
  5. WARFARIN SODIUM [Concomitant]
     Indication: ANTICOAGULANT THERAPY
     Dosage: 25 MG, 1X/DAY
  6. LASIX [Concomitant]
     Indication: CARDIAC FAILURE CONGESTIVE
     Dosage: 40 MG, 1X/DAY
  7. OMEPRAZOLE [Concomitant]
     Dosage: 40 MG, 1X/DAY
  8. ISOSORBIDE [Concomitant]
     Indication: CARDIAC DISORDER
     Dosage: 30 MG, 1X/DAY
  9. PROPAFENONE HYDROCHLORIDE [Concomitant]
     Indication: ARRHYTHMIA
     Dosage: 225 MG, 1X/DAY
  10. TOPROL XL [Concomitant]
     Indication: HYPERTENSION
     Dosage: 50 MG, 1X/DAY
  11. TOPROL XL [Concomitant]
     Indication: ARRHYTHMIA
  12. PRAVACHOL [Concomitant]
     Indication: CARDIAC DISORDER
     Dosage: 20 MG, 1X/DAY
  13. ACETYLSALICYLIC ACID [Concomitant]
     Dosage: UNK
  14. METFORMIN [Concomitant]
     Indication: DIABETES MELLITUS
     Dosage: 500 MG, 1X/DAY
  15. VITAMIN D [Concomitant]
     Indication: SUPPLEMENTATION THERAPY
     Dosage: UNK

REACTIONS (11)
  - Diverticulitis [Unknown]
  - Back disorder [Unknown]
  - Arterial disorder [Unknown]
  - Myocardial infarction [Unknown]
  - Arthropathy [Unknown]
  - Localised infection [Unknown]
  - Cardiac disorder [Unknown]
  - Cardiovascular disorder [Unknown]
  - Vein disorder [Unknown]
  - Pain [Unknown]
  - Blood chromium increased [Unknown]
